FAERS Safety Report 7559712-3 (Version None)
Quarter: 2011Q2

REPORT INFORMATION
  Report Type: 
  Country: None (occurrence: None)
  Receive Date: 20110621
  Receipt Date: 20110615
  Transmission Date: 20111010
  Serious: Yes (Life-Threatening)
  Sender: FDA-Public Use
  Company Number: PT-TEVA-286932ISR

PATIENT
  Sex: Female
  Weight: 45 kg

DRUGS (3)
  1. ANASTROZOLE [Suspect]
     Indication: BREAST CANCER
     Dosage: 1 MILLIGRAM;
     Route: 048
     Dates: start: 20100112, end: 20110521
  2. ACETYL SALICYLIC ACID COMPOUND TAB [Concomitant]
     Indication: ANTIPLATELET THERAPY
     Dosage: 150 MILLIGRAM;
     Route: 048
     Dates: start: 20080101
  3. VINPOCETINE [Concomitant]
     Indication: BRAIN INJURY
     Dosage: 5 MILLIGRAM;
     Route: 048
     Dates: start: 20080101

REACTIONS (5)
  - DYSPNOEA [None]
  - LOSS OF CONSCIOUSNESS [None]
  - LARYNGEAL OEDEMA [None]
  - LIP SWELLING [None]
  - PHARYNGEAL OEDEMA [None]
